FAERS Safety Report 9197903 (Version 2)
Quarter: 2013Q3

REPORT INFORMATION
  Report Type: Spontaneous
  Country: DE (occurrence: CA)
  Receive Date: 20130328
  Receipt Date: 20130723
  Transmission Date: 20140515
  Serious: Yes (Hospitalization)
  Sender: FDA-Public Use
  Company Number: CA-FRI-1000043832

PATIENT
  Age: 84 Year
  Sex: Female

DRUGS (4)
  1. ROFLUMILAST [Suspect]
     Dosage: 500 MCG
     Route: 048
     Dates: start: 201201
  2. SPIRIVA [Concomitant]
  3. SYMBICORT [Concomitant]
  4. WARFARIN [Concomitant]

REACTIONS (1)
  - Cerebrovascular accident [Recovered/Resolved]
